FAERS Safety Report 20536801 (Version 1)
Quarter: 2022Q1

REPORT INFORMATION
  Report Type: Report from Study
  Country: US (occurrence: US)
  Receive Date: 20220302
  Receipt Date: 20220302
  Transmission Date: 20220423
  Serious: Yes (Other)
  Sender: FDA-Public Use
  Company Number: US-JNJFOC-20210907656

PATIENT
  Age: 57 Year
  Sex: Male

DRUGS (1)
  1. PONVORY [Suspect]
     Active Substance: PONESIMOD
     Indication: Product used for unknown indication
     Route: 048
     Dates: start: 202108, end: 202108

REACTIONS (4)
  - Arrhythmia [Unknown]
  - Confusional state [Unknown]
  - Dyspnoea [Unknown]
  - Dizziness [Unknown]
